FAERS Safety Report 18564678 (Version 1)
Quarter: 2020Q4

REPORT INFORMATION
  Report Type: Spontaneous
  Country: RO (occurrence: RO)
  Receive Date: 20201201
  Receipt Date: 20201201
  Transmission Date: 20210114
  Serious: Yes (Other)
  Sender: FDA-Public Use
  Company Number: RO-ROCHE-2723529

PATIENT
  Age: 24 Year
  Sex: Female

DRUGS (1)
  1. OCREVUS [Suspect]
     Active Substance: OCRELIZUMAB
     Indication: MULTIPLE SCLEROSIS
     Route: 065

REACTIONS (1)
  - Urticarial vasculitis [Unknown]

NARRATIVE: CASE EVENT DATE: 202008
